FAERS Safety Report 5127702-6 (Version None)
Quarter: 2006Q4

REPORT INFORMATION
  Report Type: 
  Country: None (occurrence: None)
  Receive Date: 20061016
  Receipt Date: 20061012
  Transmission Date: 20070319
  Serious: Yes (Hospitalization)
  Sender: FDA-Public Use
  Company Number: US-GLAXOSMITHKLINE-A0623390A

PATIENT
  Sex: Female

DRUGS (5)
  1. LAMICTAL [Suspect]
     Indication: BIPOLAR DISORDER
     Dosage: 200MG TWICE PER DAY
     Route: 048
  2. TRILEPTAL [Concomitant]
  3. LEXAPRO [Concomitant]
  4. PERCOCET [Concomitant]
  5. VICODIN [Concomitant]

REACTIONS (2)
  - BENIGN OVARIAN TUMOUR [None]
  - DRUG EXPOSURE DURING PREGNANCY [None]
